FAERS Safety Report 13600588 (Version 1)
Quarter: 2017Q2

REPORT INFORMATION
  Report Type: Spontaneous
  Country: US (occurrence: US)
  Receive Date: 20170601
  Receipt Date: 20170601
  Transmission Date: 20170830
  Serious: Yes (Other)
  Sender: FDA-Public Use
  Company Number: PHEH2017US015552

PATIENT
  Sex: Female

DRUGS (1)
  1. GILENYA [Suspect]
     Active Substance: FINGOLIMOD HYDROCHLORIDE
     Indication: RELAPSING-REMITTING MULTIPLE SCLEROSIS
     Dosage: 0.05 MG, QD
     Route: 048
     Dates: start: 20150120, end: 20170219

REACTIONS (2)
  - Multiple sclerosis relapse [Recovering/Resolving]
  - Lymphocyte count decreased [Recovering/Resolving]
